FAERS Safety Report 8560656-9 (Version None)
Quarter: 2012Q3

REPORT INFORMATION
  Report Type: 
  Country: None (occurrence: None)
  Receive Date: 20120802
  Receipt Date: 20120729
  Transmission Date: 20120928
  Serious: Yes (Hospitalization)
  Sender: FDA-Public Use
  Company Number: PHHY2012IL061582

PATIENT
  Sex: Female

DRUGS (2)
  1. GILENYA [Suspect]
     Indication: MULTIPLE SCLEROSIS
     Dosage: 0.5 MG, QD
     Route: 048
     Dates: start: 20120712
  2. BISOPROLOL FUMARATE [Concomitant]
     Dosage: 5 MG, QD (2.5 MGX 2)

REACTIONS (8)
  - NAUSEA [None]
  - DIZZINESS [None]
  - VIRAL INFECTION [None]
  - ASTHENIA [None]
  - OROPHARYNGEAL PAIN [None]
  - BALANCE DISORDER [None]
  - URINARY TRACT INFECTION [None]
  - DIARRHOEA [None]
